FAERS Safety Report 15352201 (Version 2)
Quarter: 2018Q3

REPORT INFORMATION
  Report Type: Spontaneous
  Country: US (occurrence: US)
  Receive Date: 20180905
  Receipt Date: 20180911
  Transmission Date: 20181010
  Serious: Yes (Other)
  Sender: FDA-Public Use
  Company Number: US-PFIZER INC-2016380122

PATIENT
  Age: 79 Year
  Sex: Female
  Weight: 99.77 kg

DRUGS (6)
  1. LOPRESSOR [Concomitant]
     Active Substance: METOPROLOL TARTRATE
     Indication: VENTRICULAR ARRHYTHMIA
     Dosage: 25 MG, 2X/DAY
     Route: 048
     Dates: start: 20160209
  2. COUMADIN [Concomitant]
     Active Substance: WARFARIN SODIUM
     Dosage: 2 MG, DAILY (TAKE 1.5 TAB BY MOUTH DAILY AT 6 PM)
     Route: 048
     Dates: start: 20160209
  3. ZANAFLEX [Concomitant]
     Active Substance: TIZANIDINE HYDROCHLORIDE
     Dosage: 2 MG, AS NEEDED (TWO TIMES A DAY)
     Route: 048
     Dates: start: 20160406
  4. ZYLOPRIM [Concomitant]
     Active Substance: ALLOPURINOL
     Dosage: 100 MG, 2X/DAY
     Route: 048
     Dates: start: 20160209
  5. CELEBREX [Suspect]
     Active Substance: CELECOXIB
     Dosage: 300 MG, DAILY (200 MG IN THE MORNING AND 100 MG IN THE EVENING)
  6. CELEBREX [Suspect]
     Active Substance: CELECOXIB
     Indication: MUSCULOSKELETAL DISCOMFORT
     Dosage: 100 MG, 3X/DAY
     Route: 048
     Dates: start: 20140129

REACTIONS (6)
  - Femur fracture [Unknown]
  - Device issue [Unknown]
  - Scoliosis [Unknown]
  - Body height decreased [Unknown]
  - Product use issue [Unknown]
  - Fall [Unknown]

NARRATIVE: CASE EVENT DATE: 20140129
